FAERS Safety Report 15033627 (Version 1)
Quarter: 2018Q2

REPORT INFORMATION
  Report Type: Report from Study
  Country: US (occurrence: US)
  Receive Date: 20180619
  Receipt Date: 20180619
  Transmission Date: 20180711
  Serious: No
  Sender: FDA-Public Use
  Company Number: US-AMGEN-USASP2011012728

PATIENT
  Age: 62 Year
  Sex: Female

DRUGS (2)
  1. ARANESP [Suspect]
     Active Substance: DARBEPOETIN ALFA
     Indication: CHRONIC KIDNEY DISEASE
     Dosage: 100 MUG, UNK
     Route: 058
     Dates: end: 20101123
  2. ARANESP [Suspect]
     Active Substance: DARBEPOETIN ALFA
     Dosage: 160 MUG, UNK
     Route: 058
     Dates: start: 20101214

REACTIONS (1)
  - Drug ineffective [Unknown]
